FAERS Safety Report 24531285 (Version 2)
Quarter: 2024Q4

REPORT INFORMATION
  Report Type: Spontaneous
  Country: US (occurrence: US)
  Receive Date: 20241022
  Receipt Date: 20241109
  Transmission Date: 20250115
  Serious: Yes (Other)
  Sender: JAZZ
  Company Number: US-JAZZ PHARMACEUTICALS-2024-US-018595

PATIENT
  Age: 34 Year
  Sex: Female
  Weight: 61.224 kg

DRUGS (1)
  1. XYWAV [Suspect]
     Active Substance: CALCIUM OXYBATE\MAGNESIUM OXYBATE\POTASSIUM OXYBATE\SODIUM OXYBATE
     Indication: Narcolepsy
     Dosage: 2.5 ML AND 2.75 ML TONIGHT, TOTAL 5.25 ML

REACTIONS (3)
  - Depressed level of consciousness [Unknown]
  - Toxicity to various agents [Unknown]
  - Extra dose administered [Unknown]
